FAERS Safety Report 6732773-7 (Version None)
Quarter: 2010Q2

REPORT INFORMATION
  Report Type: 
  Country: None (occurrence: None)
  Receive Date: 20100519
  Receipt Date: 20100511
  Transmission Date: 20101027
  Serious: Yes (Hospitalization, Other)
  Sender: FDA-Public Use
  Company Number: US-AMGEN-KDL409577

PATIENT
  Sex: Female
  Weight: 64 kg

DRUGS (8)
  1. ENBREL [Suspect]
     Indication: RHEUMATOID ARTHRITIS
     Route: 058
     Dates: start: 19980101
  2. METOPROLOL TARTRATE [Suspect]
  3. LEFLUNOMIDE [Concomitant]
     Dates: start: 19980101
  4. CIMETIDINE [Concomitant]
  5. MELOXICAM [Concomitant]
     Dates: start: 20080301, end: 20090121
  6. FISH OIL [Concomitant]
  7. RELAFEN [Concomitant]
     Dates: start: 20091201
  8. OXYBUTYNIN [Concomitant]
     Dates: start: 20090901

REACTIONS (7)
  - BLOOD PRESSURE FLUCTUATION [None]
  - BRADYCARDIA [None]
  - DIZZINESS [None]
  - HEART RATE IRREGULAR [None]
  - HYPERTENSION [None]
  - SPINDLE CELL SARCOMA [None]
  - TINNITUS [None]
